FAERS Safety Report 4914336-9 (Version None)
Quarter: 2006Q1

REPORT INFORMATION
  Report Type: 
  Country: None (occurrence: None)
  Receive Date: 20060213
  Receipt Date: 20060126
  Transmission Date: 20060701
  Serious: Yes (Other)
  Sender: FDA-Public Use
  Company Number: 8014640

PATIENT
  Age: 52 Year
  Sex: Male

DRUGS (1)
  1. LORTAB [Suspect]
     Dosage: PRN

REACTIONS (7)
  - ANAEMIA [None]
  - ASPIRATION BONE MARROW ABNORMAL [None]
  - HEPATOSPLENOMEGALY [None]
  - HYPOTHERMIA [None]
  - TACHYCARDIA [None]
  - THROMBOCYTOPENIA [None]
  - TOE AMPUTATION [None]
